FAERS Safety Report 6506890-0 (Version None)
Quarter: 2009Q4

REPORT INFORMATION
  Report Type: 
  Country: None (occurrence: None)
  Receive Date: 20091221
  Receipt Date: 20091214
  Transmission Date: 20100525
  Serious: Yes (Hospitalization)
  Sender: FDA-Public Use
  Company Number: BR-B.I. PHARMACEUTICALS,INC./RIDGEFIELD-2009-BR-01268BR

PATIENT
  Sex: Male

DRUGS (1)
  1. SECOTEX ADV [Suspect]
     Indication: BENIGN PROSTATIC HYPERPLASIA
     Dosage: 0.4 MG
     Route: 048
     Dates: start: 20091201, end: 20091201

REACTIONS (4)
  - BLOOD PRESSURE DECREASED [None]
  - CHEST DISCOMFORT [None]
  - PARAESTHESIA [None]
  - TACHYCARDIA [None]
